FAERS Safety Report 9577352 (Version 2)
Quarter: 2013Q4

REPORT INFORMATION
  Report Type: Spontaneous
  Country: US (occurrence: US)
  Receive Date: 20131001
  Receipt Date: 20131001
  Transmission Date: 20140711
  Serious: No
  Sender: FDA-Public Use
  Company Number: US-AMGEN-USASP2013002141

PATIENT
  Age: 42 Year
  Sex: Female

DRUGS (8)
  1. ENBREL [Suspect]
     Indication: PSORIATIC ARTHROPATHY
     Dosage: UNK
     Dates: start: 2006, end: 2006
  2. ENBREL [Suspect]
     Indication: PSORIASIS
  3. ASA [Concomitant]
     Dosage: UNK
  4. ESTROPIPATE W/NORETHISTERONE [Concomitant]
     Dosage: UNK
  5. MAGNESIUM [Concomitant]
     Dosage: UNK
  6. SINGULAIR [Concomitant]
     Dosage: UNK
  7. SYNTHROID [Concomitant]
     Dosage: UNK
  8. TYLENOL PM [Concomitant]
     Dosage: UNK

REACTIONS (4)
  - Drug hypersensitivity [Unknown]
  - Muscular weakness [Unknown]
  - Lethargy [Unknown]
  - Nasopharyngitis [Recovered/Resolved]
